FAERS Safety Report 9726324 (Version 3)
Quarter: 2014Q2

REPORT INFORMATION
  Report Type: Spontaneous
  Country: US (occurrence: US)
  Receive Date: 20131203
  Receipt Date: 20140618
  Transmission Date: 20141212
  Serious: Yes (Hospitalization, Other)
  Sender: FDA-Public Use
  Company Number: US-BAYER-2013-041406

PATIENT
  Age: 66 Year
  Sex: Female
  Weight: 73 kg

DRUGS (7)
  1. BAYER MIGRAINE FORMULA [Suspect]
     Indication: HEADACHE
     Dosage: 2 DF, ONCE
     Route: 048
     Dates: start: 20130328, end: 20130328
  2. BAYER ASPIRIN REGIMEN ADULT LOW STRENGTH [Suspect]
     Indication: CARDIOVASCULAR DISORDER
     Dosage: UNK DF, UNK
     Route: 048
     Dates: start: 2013, end: 2013
  3. GLIMEPIRIDE [Concomitant]
     Dosage: 1 MG, UNK
  4. CELEBREX [Concomitant]
     Dosage: 100 MG, UNK
  5. ALLOPURINOL [Concomitant]
     Dosage: 300 MG, UNK
  6. LIPITOR [Concomitant]
  7. LISINOPRIL [Concomitant]

REACTIONS (13)
  - Hypersensitivity [Recovered/Resolved]
  - Anxiety [None]
  - Swollen tongue [Recovered/Resolved]
  - Pharyngeal oedema [Recovered/Resolved]
  - Pruritus [Recovered/Resolved]
  - Throat tightness [Recovered/Resolved]
  - Swelling face [Recovered/Resolved]
  - Blood pressure decreased [Recovered/Resolved]
  - Vision blurred [Recovered/Resolved]
  - Drug ineffective [None]
  - Swelling face [Recovered/Resolved]
  - Mouth swelling [Recovered/Resolved]
  - Off label use [None]
